FAERS Safety Report 5386943-3 (Version None)
Quarter: 2007Q3

REPORT INFORMATION
  Report Type: 
  Country: None (occurrence: None)
  Receive Date: 20070713
  Receipt Date: 20070702
  Transmission Date: 20080115
  Serious: Yes (Hospitalization, Other)
  Sender: FDA-Public Use
  Company Number: FR-PFIZER INC-2007054781

PATIENT
  Sex: Male

DRUGS (8)
  1. XANAX [Suspect]
  2. ATORVASTATIN CALCIUM [Concomitant]
  3. IMOVANE [Concomitant]
  4. ZYLORIC ^FAES^ [Concomitant]
  5. PERMIXON [Concomitant]
  6. LANSOPRAZOLE [Concomitant]
  7. LOSARTAN POTASSIUM [Concomitant]
  8. VERAPAMIL HYDROCHLORIDE [Concomitant]

REACTIONS (2)
  - HEADACHE [None]
  - HYPERTENSION [None]
